FAERS Safety Report 4403154-6 (Version None)
Quarter: 2004Q3

REPORT INFORMATION
  Report Type: 
  Country: None (occurrence: None)
  Receive Date: 20040721
  Receipt Date: 20040520
  Transmission Date: 20050211
  Serious: No
  Sender: FDA-Public Use
  Company Number: US-GLAXOSMITHKLINE-A0511746A

PATIENT
  Age: 52 Year
  Sex: Female
  Weight: 90.9 kg

DRUGS (6)
  1. IMITREX [Suspect]
     Indication: MIGRAINE
     Dosage: 100MG SINGLE DOSE
     Route: 048
     Dates: start: 20040303, end: 20040304
  2. TRAZODONE HCL [Concomitant]
     Dosage: 50MG AT NIGHT
  3. ALLEGRA [Concomitant]
     Dosage: 180MG AS REQUIRED
     Route: 048
  4. WELLBUTRIN SR [Concomitant]
     Dosage: 150MG TWICE PER DAY
     Route: 048
  5. ORTHO-PREFEST [Concomitant]
  6. TOPROL-XL [Concomitant]
     Dosage: 25MG PER DAY

REACTIONS (4)
  - ASTHENIA [None]
  - DYSARTHRIA [None]
  - FACIAL PARESIS [None]
  - HYPERHIDROSIS [None]
